FAERS Safety Report 8187678-4 (Version None)
Quarter: 2012Q1

REPORT INFORMATION
  Report Type: 
  Country: None (occurrence: None)
  Receive Date: 20120306
  Receipt Date: 20120229
  Transmission Date: 20120608
  Serious: Yes (Hospitalization, Other)
  Sender: FDA-Public Use
  Company Number: US-BAYER-2012-020514

PATIENT
  Age: 61 Year
  Sex: Male

DRUGS (9)
  1. FOLIC ACID [Concomitant]
     Indication: ANAEMIA
     Dosage: 1 MG, QD
     Route: 048
     Dates: start: 20110504, end: 20110525
  2. CIPRO [Suspect]
     Indication: SKIN BACTERIAL INFECTION
     Dosage: 400 MG, QD
     Dates: start: 20110508, end: 20110518
  3. VANCOMYCIN [Suspect]
     Indication: SKIN BACTERIAL INFECTION
     Dosage: 2 G, QD
     Route: 042
     Dates: start: 20110503, end: 20110506
  4. ERTAPENEM [Suspect]
     Indication: SKIN BACTERIAL INFECTION
     Dosage: 2 G, QD
     Route: 042
     Dates: start: 20110503, end: 20110509
  5. CEFTAROLINE [Suspect]
     Indication: SKIN BACTERIAL INFECTION
     Dosage: UNK
     Dates: start: 20110506, end: 20110516
  6. FUROSEMIDE [Concomitant]
     Indication: HYPERTENSION
     Dosage: 40 MG, QD
     Dates: start: 20110504, end: 20110509
  7. CYANOCOBALAMIN [Concomitant]
     Indication: ANAEMIA
     Dosage: UNK
     Route: 058
  8. HYDRALAZINE HCL [Concomitant]
     Indication: HYPERTENSION
     Dosage: 25 MG, TID
     Dates: start: 20110517, end: 20110525
  9. ASCORBIC ACID [Concomitant]
     Indication: SUPPLEMENTATION THERAPY
     Dosage: UNK
     Route: 048

REACTIONS (2)
  - THROMBOCYTOPENIA [None]
  - RENAL FAILURE ACUTE [None]
